FAERS Safety Report 23246192 (Version 1)
Quarter: 2023Q4

REPORT INFORMATION
  Report Type: Report from Study
  Country: US (occurrence: US)
  Receive Date: 20231130
  Receipt Date: 20231130
  Transmission Date: 20240110
  Serious: Yes (Hospitalization)
  Sender: FDA-Public Use
  Company Number: US-Eisai-EC-2023-153948

PATIENT
  Age: 50 Year
  Sex: Male
  Weight: 74.83 kg

DRUGS (8)
  1. LENVIMA [Suspect]
     Active Substance: LENVATINIB
     Indication: Renal cell carcinoma
     Dosage: DOSING DETAILS UNKNOWN
     Route: 048
     Dates: end: 202309
  2. LENVIMA [Suspect]
     Active Substance: LENVATINIB
     Dosage: DOSING DETAILS UNKNOWN
     Route: 048
     Dates: start: 202309
  3. AFINITOR [Suspect]
     Active Substance: EVEROLIMUS
     Indication: Renal cell carcinoma
     Dosage: DOSING DETAILS UNKNOWN
     Route: 048
  4. CABOMETYX [Suspect]
     Active Substance: CABOZANTINIB S-MALATE
     Indication: Renal cell carcinoma
     Route: 048
  5. VITAMINS [Concomitant]
     Active Substance: VITAMINS
  6. MORPHINE [Concomitant]
     Active Substance: MORPHINE
  7. OXYCODONE [Concomitant]
     Active Substance: OXYCODONE
  8. PREGABALIN [Concomitant]
     Active Substance: PREGABALIN

REACTIONS (1)
  - Pneumonia [Not Recovered/Not Resolved]

NARRATIVE: CASE EVENT DATE: 20230915
